FAERS Safety Report 4363862-2 (Version None)
Quarter: 2004Q2

REPORT INFORMATION
  Report Type: 
  Country: None (occurrence: None)
  Receive Date: 20040524
  Receipt Date: 20040524
  Transmission Date: 20050107
  Serious: No
  Sender: FDA-Public Use
  Company Number: None

PATIENT
  Sex: Female
  Weight: 54.4316 kg

DRUGS (1)
  1. CEFEPIME 2 GM [Suspect]
     Indication: PSEUDOMONAS INFECTION
     Dosage: 4 GM IV Q12H
     Route: 042
     Dates: start: 20040305, end: 20040324

REACTIONS (2)
  - NERVOUSNESS [None]
  - TREMOR [None]
